FAERS Safety Report 17052276 (Version 1)
Quarter: 2019Q4

REPORT INFORMATION
  Report Type: Spontaneous
  Country: US (occurrence: US)
  Receive Date: 20191119
  Receipt Date: 20191119
  Transmission Date: 20200122
  Serious: Yes (Hospitalization)
  Sender: FDA-Public Use
  Company Number: None

PATIENT
  Sex: Female

DRUGS (18)
  1. HYDROMORPHON [Concomitant]
     Active Substance: HYDROMORPHONE
  2. FEROSUL [Concomitant]
     Active Substance: FERROUS SULFATE
  3. SPIRONOLACT [Concomitant]
     Active Substance: SPIRONOLACTONE
  4. TOPIRAMATE. [Concomitant]
     Active Substance: TOPIRAMATE
  5. ARIPIPRAZOLE. [Concomitant]
     Active Substance: ARIPIPRAZOLE
  6. AZITHROMYCIN ANHYDROUS. [Concomitant]
     Active Substance: AZITHROMYCIN ANHYDROUS
  7. FAMOTIDINE. [Concomitant]
     Active Substance: FAMOTIDINE
  8. BISOPROL [Concomitant]
     Active Substance: BISOPROLOL FUMARATE
  9. SALINE [Concomitant]
     Active Substance: SODIUM CHLORIDE
  10. SILDENAFIL. [Suspect]
     Active Substance: SILDENAFIL
     Indication: PULMONARY ARTERIAL HYPERTENSION
     Dosage: ?          OTHER FREQUENCY:TIW;?
     Route: 048
     Dates: start: 20190924
  11. ZOLPIDEM [Concomitant]
     Active Substance: ZOLPIDEM TARTRATE
  12. DEXTROAMPHET SACCHARAT, AMPHET ASPARTATE, DEXTROAMPHET SULFATE AND AMPHET SULFAT [Concomitant]
     Active Substance: AMPHETAMINE ASPARTATE\AMPHETAMINE SULFATE\DEXTROAMPHETAMINE SACCHARATE\DEXTROAMPHETAMINE SULFATE
  13. PROPRANOLOL [Concomitant]
     Active Substance: PROPRANOLOL HYDROCHLORIDE
  14. REPLESTA [Concomitant]
     Active Substance: CHOLECALCIFEROL
  15. DOXYCYCL [Concomitant]
  16. ELIQUIS [Concomitant]
     Active Substance: APIXABAN
  17. FUROSEMIDE. [Concomitant]
     Active Substance: FUROSEMIDE
  18. CLONAZEPAM. [Concomitant]
     Active Substance: CLONAZEPAM

REACTIONS (2)
  - Hospitalisation [None]
  - Unevaluable event [None]
